FAERS Safety Report 9417363 (Version 2)
Quarter: 2013Q4

REPORT INFORMATION
  Report Type: Spontaneous
  Country: US (occurrence: US)
  Receive Date: 20130724
  Receipt Date: 20131022
  Transmission Date: 20140711
  Serious: No
  Sender: FDA-Public Use
  Company Number: US-BRISTOL-MYERS SQUIBB COMPANY-18857896

PATIENT
  Age: 80 Year
  Sex: Female
  Weight: 49.89 kg

DRUGS (2)
  1. ELIQUIS [Suspect]
     Indication: ATRIAL FIBRILLATION
     Dates: start: 201303, end: 201308
  2. ATENOLOL [Concomitant]

REACTIONS (7)
  - Anxiety [Unknown]
  - Gingival bleeding [Recovered/Resolved]
  - Headache [Unknown]
  - Pain [Recovering/Resolving]
  - Rash macular [Recovering/Resolving]
  - Depression [Recovering/Resolving]
  - Asthenia [Recovering/Resolving]
